FAERS Safety Report 15285265 (Version 6)
Quarter: 2020Q4

REPORT INFORMATION
  Report Type: Report from Study
  Country: CA (occurrence: CA)
  Receive Date: 20180816
  Receipt Date: 20201211
  Transmission Date: 20210113
  Serious: Yes (Other)
  Sender: FDA-Public Use
  Company Number: CA-JNJFOC-20180810929

PATIENT
  Age: 50 Year
  Sex: Female
  Weight: 44.6 kg

DRUGS (2)
  1. SIMPONI [Suspect]
     Active Substance: GOLIMUMAB
     Route: 058
  2. SIMPONI [Suspect]
     Active Substance: GOLIMUMAB
     Indication: COLITIS ULCERATIVE
     Route: 058
     Dates: start: 20160513

REACTIONS (5)
  - Colitis ulcerative [Not Recovered/Not Resolved]
  - Cystitis [Recovered/Resolved]
  - Hepatic mass [Recovered/Resolved]
  - Drug ineffective [Unknown]
  - Vaginal infection [Not Recovered/Not Resolved]
